FAERS Safety Report 10707801 (Version 2)
Quarter: 2015Q1

REPORT INFORMATION
  Report Type: Report from Study
  Country: BR (occurrence: BR)
  Receive Date: 20150113
  Receipt Date: 20150210
  Transmission Date: 20150721
  Serious: Yes (Hospitalization)
  Sender: FDA-Public Use
  Company Number: PHHY2015BR003056

PATIENT
  Age: 15 Year
  Sex: Male
  Weight: 25 kg

DRUGS (2)
  1. CIPROFLOXACIN. [Concomitant]
     Active Substance: CIPROFLOXACIN
     Indication: BACTERIAL INFECTION
     Dosage: 2 DF, QD
     Route: 048
  2. ZOTEON [Suspect]
     Active Substance: TOBRAMYCIN
     Indication: FIBROSIS
     Dosage: UNK, BID (2 TIMES PER DAY)
     Route: 055
     Dates: start: 201409, end: 201410

REACTIONS (3)
  - Secretion discharge [Recovering/Resolving]
  - Fatigue [Recovering/Resolving]
  - Product use issue [Unknown]

NARRATIVE: CASE EVENT DATE: 201409
